FAERS Safety Report 7484655-3 (Version None)
Quarter: 2011Q2

REPORT INFORMATION
  Report Type: 
  Country: None (occurrence: None)
  Receive Date: 20110517
  Receipt Date: 20101130
  Transmission Date: 20111010
  Serious: Yes (Hospitalization, Other)
  Sender: FDA-Public Use
  Company Number: US-BAYER-200941677NA

PATIENT
  Age: 32 Year
  Sex: Female
  Weight: 97.506 kg

DRUGS (11)
  1. ALBUTEROL [Concomitant]
     Indication: MULTIPLE ALLERGIES
     Dosage: UNK
     Dates: start: 20060101
  2. FLOVENT [Concomitant]
     Indication: MULTIPLE ALLERGIES
     Dosage: UNK
     Dates: start: 20060101
  3. ASPIRIN [Concomitant]
  4. YAZ [Suspect]
     Indication: PRODUCT USED FOR UNKNOWN INDICATION
     Dosage: UNK
  5. ZYRTEC-D 12 HOUR [Concomitant]
     Indication: MULTIPLE ALLERGIES
     Dosage: UNK
     Dates: start: 20060101
  6. FIORICET [Concomitant]
     Indication: MULTIPLE ALLERGIES
     Dosage: UNK
     Dates: start: 20060101
  7. EFFEXOR [Concomitant]
     Indication: FATIGUE
  8. NASONEX [Concomitant]
     Indication: MULTIPLE ALLERGIES
     Dosage: UNK
     Dates: start: 20060101
  9. ACETAMINOPHEN [Concomitant]
     Indication: HEADACHE
  10. PROVIGIL [Concomitant]
     Indication: FATIGUE
  11. YASMIN [Suspect]
     Indication: CONTRACEPTION
     Dosage: UNK
     Dates: start: 20070901, end: 20071201

REACTIONS (4)
  - CONVULSION [None]
  - INTRACRANIAL VENOUS SINUS THROMBOSIS [None]
  - CEREBRAL HAEMORRHAGE [None]
  - SUBARACHNOID HAEMORRHAGE [None]
